FAERS Safety Report 7596447-5 (Version None)
Quarter: 2011Q3

REPORT INFORMATION
  Report Type: 
  Country: None (occurrence: None)
  Receive Date: 20110708
  Receipt Date: 20110629
  Transmission Date: 20111222
  Serious: Yes (Hospitalization)
  Sender: FDA-Public Use
  Company Number: US-BIOGENIDEC-2011BI016161

PATIENT
  Age: 53 Year
  Sex: Female

DRUGS (1)
  1. TYSABRI [Suspect]
     Indication: MULTIPLE SCLEROSIS
     Route: 042
     Dates: start: 20100316, end: 20110427

REACTIONS (10)
  - DRUG INEFFECTIVE [None]
  - CHOLELITHIASIS [None]
  - GOITRE [None]
  - MULTIPLE SCLEROSIS [None]
  - GASTROOESOPHAGEAL REFLUX DISEASE [None]
  - HYPOAESTHESIA [None]
  - MUSCULAR WEAKNESS [None]
  - NEURALGIA [None]
  - AUTOIMMUNE THYROIDITIS [None]
  - CENTRAL NERVOUS SYSTEM LESION [None]
